FAERS Safety Report 13709725 (Version 2)
Quarter: 2018Q3

REPORT INFORMATION
  Report Type: Spontaneous
  Country: DE (occurrence: DE)
  Receive Date: 20170703
  Receipt Date: 20180806
  Transmission Date: 20181010
  Serious: Yes (Other)
  Sender: FDA-Public Use
  Company Number: DE-SUN PHARMACEUTICAL INDUSTRIES LTD-2017RR-144001

PATIENT
  Sex: Female
  Weight: 104 kg

DRUGS (4)
  1. VALSARTAN. [Suspect]
     Active Substance: VALSARTAN
     Indication: HYPERTENSION
     Dosage: 160 MG [MG/D (1?0?0) ORAL]
     Route: 048
     Dates: start: 20160827, end: 20170206
  2. MEPTID [Concomitant]
     Active Substance: MEPTAZINOL HYDROCHLORIDE
     Indication: LABOUR PAIN
     Dosage: UNK
     Route: 042
     Dates: start: 20170507, end: 20170507
  3. NALPAIN [Concomitant]
     Indication: LABOUR PAIN
     Dosage: UNK
     Route: 042
     Dates: start: 20170507, end: 20170507
  4. METHYLDOPA. [Concomitant]
     Active Substance: METHYLDOPA
     Indication: HYPERTENSION
     Dosage: 750 [MG/D(3X250)]
     Route: 048
     Dates: start: 20170207, end: 20170507

REACTIONS (1)
  - Oligohydramnios [Recovered/Resolved]
